FAERS Safety Report 4761933-X (Version None)
Quarter: 2005Q3

REPORT INFORMATION
  Report Type: 
  Country: None (occurrence: None)
  Receive Date: 20050831
  Receipt Date: 20050526
  Transmission Date: 20060218
  Serious: Yes (Other)
  Sender: FDA-Public Use
  Company Number: US-JNJFOC-20050507340

PATIENT
  Age: 47 Year
  Sex: Male

DRUGS (1)
  1. ORTHOCLONE OKT3 [Suspect]

REACTIONS (1)
  - CONVULSION [None]
